FAERS Safety Report 7959103-7 (Version None)
Quarter: 2011Q4

REPORT INFORMATION
  Report Type: 
  Country: None (occurrence: None)
  Receive Date: 20111206
  Receipt Date: 20111206
  Transmission Date: 20120403
  Serious: Yes (Hospitalization)
  Sender: FDA-Public Use
  Company Number: None

PATIENT
  Age: 39 Year
  Sex: Male
  Weight: 118 kg

DRUGS (1)
  1. SILDENAFIL [Suspect]
     Indication: SEXUAL DYSFUNCTION
     Dosage: 1 PILL
     Dates: start: 20111201, end: 20111201

REACTIONS (3)
  - CHEST PAIN [None]
  - PALPITATIONS [None]
  - HYPERHIDROSIS [None]
